FAERS Safety Report 6424132-1 (Version None)
Quarter: 2009Q4

REPORT INFORMATION
  Report Type: 
  Country: None (occurrence: None)
  Receive Date: 20091029
  Receipt Date: 20091019
  Transmission Date: 20100525
  Serious: Yes (Hospitalization)
  Sender: FDA-Public Use
  Company Number: 8053535

PATIENT
  Age: 78 Year
  Sex: Male
  Weight: 75 kg

DRUGS (11)
  1. CERTOLIZUMAB PEGOL [Suspect]
     Indication: RHEUMATOID ARTHRITIS
     Dosage: 400 MG 1 2W SC
     Route: 058
     Dates: start: 20050815, end: 20060731
  2. CERTOLIZUMAB PEGOL [Suspect]
     Indication: RHEUMATOID ARTHRITIS
     Dosage: 200 MG 1 2W SC
     Route: 058
     Dates: start: 20060814
  3. METHOTREXATE [Concomitant]
  4. FOLIC ACID [Concomitant]
  5. ATENOLOL [Concomitant]
  6. REMETHAN [Concomitant]
  7. AMLODIPINE [Concomitant]
  8. CARTIA XT [Concomitant]
  9. SIMVASTATIN [Concomitant]
  10. OMEPRAZOLE [Concomitant]
  11. CALCIUM [Concomitant]

REACTIONS (5)
  - BRONCHITIS [None]
  - CEREBROVASCULAR ACCIDENT [None]
  - COUGH [None]
  - GASTROINTESTINAL DISORDER [None]
  - OSTEOPOROSIS [None]
